FAERS Safety Report 6296359-3 (Version None)
Quarter: 2009Q3

REPORT INFORMATION
  Report Type: 
  Country: None (occurrence: None)
  Receive Date: 20090804
  Receipt Date: 20090727
  Transmission Date: 20100115
  Serious: Yes (Other)
  Sender: FDA-Public Use
  Company Number: PHHY2009MX30469

PATIENT
  Sex: Female

DRUGS (2)
  1. DIOVAN HCT [Suspect]
     Dosage: 1 TABLET (80/12.5 MG) PER DAY
     Route: 048
     Dates: start: 20061101, end: 20090622
  2. DIOVAN HCT [Suspect]
     Dosage: 0.5 TABLET PER DAY
     Route: 048
     Dates: start: 20090622

REACTIONS (6)
  - FALL [None]
  - HAND FRACTURE [None]
  - HYPOGLYCAEMIA [None]
  - HYPOTENSION [None]
  - KNEE OPERATION [None]
  - LOWER LIMB FRACTURE [None]
